FAERS Safety Report 5328367-0 (Version None)
Quarter: 2007Q2

REPORT INFORMATION
  Report Type: 
  Country: None (occurrence: None)
  Receive Date: 20070518
  Receipt Date: 20070509
  Transmission Date: 20071010
  Serious: Yes (Life-Threatening, Hospitalization, Disabling)
  Sender: FDA-Public Use
  Company Number: GB-JNJFOC-20070502654

PATIENT
  Age: 51 Year
  Sex: Female
  Weight: 88 kg

DRUGS (3)
  1. REMICADE [Suspect]
     Indication: PSORIATIC ARTHROPATHY
     Route: 042
  2. CO-CODAMOL [Concomitant]
     Indication: ANALGESIC EFFECT
  3. SULFASALAZINE [Concomitant]
     Indication: COLITIS
     Route: 048

REACTIONS (1)
  - ALVEOLITIS FIBROSING [None]
